FAERS Safety Report 4577361-6 (Version None)
Quarter: 2005Q1

REPORT INFORMATION
  Report Type: 
  Country: None (occurrence: None)
  Receive Date: 20050210
  Receipt Date: 20050202
  Transmission Date: 20050727
  Serious: Yes (Hospitalization)
  Sender: FDA-Public Use
  Company Number: DE-GLAXOSMITHKLINE-B0365625B

PATIENT
  Age: 66 Year
  Sex: Male

DRUGS (18)
  1. TOPOTECAN [Suspect]
     Indication: SMALL CELL LUNG CANCER STAGE UNSPECIFIED
     Dosage: 100MGM2 PER DAY
     Route: 042
     Dates: start: 20050105, end: 20050109
  2. CISPLATIN [Suspect]
     Indication: SMALL CELL LUNG CANCER STAGE UNSPECIFIED
     Dosage: 75MGM2 PER DAY
     Route: 042
     Dates: start: 20050109, end: 20050109
  3. OXIS [Concomitant]
  4. DICODID [Concomitant]
  5. PARACODINE [Concomitant]
  6. DYTIDE H [Concomitant]
  7. PLANUM [Concomitant]
  8. ROHYPNOL [Concomitant]
  9. DIAZEPAM [Concomitant]
  10. LAXOBERAL [Concomitant]
  11. EMBOLEX [Concomitant]
  12. DECORTIN [Concomitant]
  13. SYMBICORT [Concomitant]
  14. AMPHO-MORONAL [Concomitant]
  15. NOVALGIN [Concomitant]
  16. MCP [Concomitant]
  17. ALLOPURINOL [Concomitant]
  18. NOVAMINSULFON [Concomitant]

REACTIONS (2)
  - EXANTHEM [None]
  - HERPES ZOSTER [None]
